FAERS Safety Report 25245568 (Version 1)
Quarter: 2025Q2

REPORT INFORMATION
  Report Type: Spontaneous
  Country: US (occurrence: None)
  Receive Date: 20250425
  Receipt Date: 20250425
  Transmission Date: 20250717
  Serious: Yes (Hospitalization)
  Sender: FDA-CTU
  Company Number: None

PATIENT
  Age: 57 Year
  Sex: Female

DRUGS (1)
  1. VUMERITY [Suspect]
     Active Substance: DIROXIMEL FUMARATE
     Indication: Multiple sclerosis
     Dosage: FREQUENCY : TWICE A DAY;?
     Route: 048

REACTIONS (8)
  - Dyspnoea [None]
  - Tachycardia [None]
  - Cardiac disorder [None]
  - Therapy interrupted [None]
  - Product dose omission in error [None]
  - Memory impairment [None]
  - Multiple sclerosis relapse [None]
  - Depression [None]
